FAERS Safety Report 6256995-7 (Version None)
Quarter: 2009Q3

REPORT INFORMATION
  Report Type: 
  Country: None (occurrence: None)
  Receive Date: 20090706
  Receipt Date: 20090623
  Transmission Date: 20100115
  Serious: Yes (Hospitalization)
  Sender: FDA-Public Use
  Company Number: A0762219A

PATIENT
  Age: 50 Year
  Sex: Female

DRUGS (1)
  1. AVANDAMET [Suspect]
     Dosage: 2MG TWICE PER DAY
     Route: 048
     Dates: start: 20040202, end: 20040901

REACTIONS (6)
  - DIZZINESS [None]
  - DYSPNOEA [None]
  - HEMIPARESIS [None]
  - LETHARGY [None]
  - PAIN [None]
  - SYNCOPE [None]
